FAERS Safety Report 5145924-5 (Version None)
Quarter: 2006Q4

REPORT INFORMATION
  Report Type: 
  Country: None (occurrence: None)
  Receive Date: 20061102
  Receipt Date: 20061020
  Transmission Date: 20070319
  Serious: Yes (Death)
  Sender: FDA-Public Use
  Company Number: 2006128904

PATIENT
  Age: 74 Year
  Sex: Male
  Weight: 76 kg

DRUGS (5)
  1. ZYVOX [Suspect]
     Indication: ENTEROCOCCAL INFECTION
     Dosage: 1200 MG (600 MG, 2 IN 1 D), INTRAVENOUS
     Route: 042
     Dates: start: 20060516, end: 20060529
  2. CITOPCIN (CIPROFLOXACIN HYDROCHLORIDE) [Concomitant]
  3. MEROPEN (MEROPENEM) [Concomitant]
  4. ADELAVIN (FLAVINE ADENINE DINUCLEOTIDE) [Concomitant]
  5. MAXIPIME [Concomitant]

REACTIONS (5)
  - ACINETOBACTER INFECTION [None]
  - CANDIDIASIS [None]
  - CULTURE POSITIVE [None]
  - SEPTIC SHOCK [None]
  - THROMBOCYTOPENIA [None]
